FAERS Safety Report 5647181-X (Version None)
Quarter: 2008Q1

REPORT INFORMATION
  Report Type: 
  Country: None (occurrence: None)
  Receive Date: 20080228
  Receipt Date: 20080213
  Transmission Date: 20080703
  Serious: Yes (Death)
  Sender: FDA-Public Use
  Company Number: IDA-00005

PATIENT
  Age: 36 Year
  Sex: Female

DRUGS (13)
  1. PROPRANOLOL HCL [Suspect]
     Dosage: 40 MG, TID, PO
     Route: 048
     Dates: start: 20061125, end: 20060101
  2. MERONEM (MEROPENEM), UNK. STRENGTH, ASTRAZENECA [Suspect]
     Dosage: PO
     Route: 048
     Dates: start: 20061122, end: 20060101
  3. HUMAN ALBUMIN, UNK. MANUFACTURER [Suspect]
     Dates: start: 20061129, end: 20060101
  4. SEPTRIN FORTE, UNK. MANUFACTURER [Suspect]
     Dates: start: 20061117, end: 20060101
  5. DIFLUCAN [Suspect]
     Dosage: 200 MG, QD, IV
     Route: 042
     Dates: start: 20061104, end: 20060101
  6. FOLIC ACID [Suspect]
     Dates: start: 20061117, end: 20060101
  7. TARGOCID (TEICOPLANIN), UNK.STRENGTH [Suspect]
     Dosage: 400 MG, QD,
     Dates: start: 20061125, end: 20060101
  8. ZANTAC [Suspect]
     Dosage: 0.5 G, QID, IV
     Route: 042
     Dates: start: 20061115, end: 20061205
  9. GANCICLOVIR [Suspect]
     Dosage: 300 MG, QD,
     Dates: start: 20061124, end: 20061204
  10. MORPHINE HYDROCHLORIDE, UNK. STRENGTH, [Suspect]
     Dates: start: 20061129, end: 20060101
  11. ALEMTUZUMAB, UNK. STRENGTH, UNK. MANUFACTURER [Suspect]
     Indication: T-CELL LYMPHOMA
     Dosage: 30 MG, TID, IV
     Route: 042
     Dates: start: 20061110, end: 20061204
  12. LORAZEPAM [Suspect]
     Dosage: 1 MG, QD, PO
     Route: 048
     Dates: start: 20061109, end: 20060101
  13. MIDAZOLAM, UNK. STRENGTH, UNK. MANUFACTURER [Suspect]
     Dosage: 15 MG, QD
     Dates: start: 20061129, end: 20060101

REACTIONS (1)
  - HEPATIC FAILURE [None]
